FAERS Safety Report 25705697 (Version 1)
Quarter: 2025Q3

REPORT INFORMATION
  Report Type: Spontaneous
  Country: US (occurrence: None)
  Receive Date: 20250819
  Receipt Date: 20250819
  Transmission Date: 20251021
  Serious: Yes (Hospitalization)
  Sender: FDA-CTU
  Company Number: None

PATIENT
  Age: 81 Year
  Sex: Female

DRUGS (11)
  1. XOLAIR [Suspect]
     Active Substance: OMALIZUMAB
     Indication: Asthma
     Route: 058
     Dates: start: 20220916
  2. AT0RVASTATIN TAB 20MG [Concomitant]
  3. AV0NEX PREFL KIT 30MCG [Concomitant]
  4. BAND-AID CLR MIS PLASTIC [Concomitant]
  5. BO NEEDLE MIS 27GX1 .25 [Concomitant]
  6. CHL0RHEX GLU SOL 0.12% [Concomitant]
  7. CIPR0FL0XACN TAB 500MG [Concomitant]
  8. CLINDAMYCIN HYDROCHLORIDE [Concomitant]
     Active Substance: CLINDAMYCIN HYDROCHLORIDE
  9. C0MBIVENT AER [Concomitant]
  10. ELIQUIS [Concomitant]
     Active Substance: APIXABAN
  11. FL0VENT HFA AER 44MCG [Concomitant]

REACTIONS (1)
  - Hospitalisation [None]

NARRATIVE: CASE EVENT DATE: 20250816
